FAERS Safety Report 6040385-6 (Version None)
Quarter: 2009Q1

REPORT INFORMATION
  Report Type: 
  Country: None (occurrence: None)
  Receive Date: 20090116
  Receipt Date: 20080304
  Transmission Date: 20090719
  Serious: Yes (Hospitalization)
  Sender: FDA-Public Use
  Company Number: US-BRISTOL-MYERS SQUIBB COMPANY-14101596

PATIENT
  Age: 34 Year
  Sex: Female
  Weight: 72 kg

DRUGS (5)
  1. ABILIFY [Suspect]
     Dosage: AT BEDTIME
  2. DIOVAN [Concomitant]
  3. METFORMIN HCL [Concomitant]
  4. VITAMIN D [Concomitant]
  5. KLONOPIN [Concomitant]

REACTIONS (13)
  - ANXIETY [None]
  - CHOKING SENSATION [None]
  - DECREASED APPETITE [None]
  - DISTURBANCE IN ATTENTION [None]
  - FATIGUE [None]
  - HEADACHE [None]
  - HYPERTENSION [None]
  - INSOMNIA [None]
  - NAUSEA [None]
  - NECK PAIN [None]
  - PALPITATIONS [None]
  - TREMOR [None]
  - VOMITING [None]
